FAERS Safety Report 5221739-4 (Version None)
Quarter: 2007Q1

REPORT INFORMATION
  Report Type: 
  Country: None (occurrence: None)
  Receive Date: 20070129
  Receipt Date: 20070117
  Transmission Date: 20070707
  Serious: Yes (Hospitalization, Other)
  Sender: FDA-Public Use
  Company Number: PHHO2006JP14424

PATIENT
  Age: 83 Year
  Sex: Male

DRUGS (7)
  1. LIVALO [Suspect]
     Indication: HYPERCHOLESTEROLAEMIA
     Dosage: 2 MG, QD
     Route: 048
     Dates: start: 20050317, end: 20051026
  2. LIVALO [Suspect]
     Dosage: 2 MG, QW
     Route: 048
     Dates: start: 20051027
  3. PARLODEL [Suspect]
     Dates: start: 20060128, end: 20060131
  4. MENESIT [Suspect]
     Dosage: 100 MG, UNK
     Route: 048
     Dates: start: 20051215
  5. SYMMETREL [Concomitant]
  6. PERINDOPRIL ERBUMINE [Concomitant]
  7. PLETAL [Concomitant]

REACTIONS (2)
  - ASTHENIA [None]
  - NEUROLEPTIC MALIGNANT SYNDROME [None]
